FAERS Safety Report 4926151-0 (Version None)
Quarter: 2006Q1

REPORT INFORMATION
  Report Type: 
  Country: None (occurrence: None)
  Receive Date: 20060228
  Receipt Date: 20050829
  Transmission Date: 20060701
  Serious: No
  Sender: FDA-Public Use
  Company Number: US-GLAXOSMITHKLINE-A0572214A

PATIENT
  Sex: Male

DRUGS (4)
  1. LAMICTAL [Suspect]
     Dosage: 25MG PER DAY
     Route: 048
     Dates: start: 20050701, end: 20050823
  2. DEPAKOTE [Suspect]
     Dosage: 1250MG PER DAY
     Route: 048
     Dates: end: 20050823
  3. VALPROATE SODIUM [Concomitant]
  4. WELLBUTRIN SR [Concomitant]

REACTIONS (2)
  - ERYTHEMA [None]
  - PRURITUS [None]
